FAERS Safety Report 15742792 (Version 2)
Quarter: 2019Q1

REPORT INFORMATION
  Report Type: Report from Study
  Country: JP (occurrence: JP)
  Receive Date: 20181219
  Receipt Date: 20190117
  Transmission Date: 20190417
  Serious: Yes (Other)
  Sender: FDA-Public Use
  Company Number: JP-BEH-2018097847

PATIENT
  Age: 70 Year
  Sex: Female
  Weight: 40.3 kg

DRUGS (8)
  1. BERIPLEX P/N [Suspect]
     Active Substance: COAGULATION FACTOR IX HUMAN\COAGULATION FACTOR VII HUMAN\COAGULATION FACTOR X HUMAN\PROTEIN C\PROTEIN S HUMAN\PROTHROMBIN
     Indication: HAEMORRHAGE
     Dosage: 1000 IU, TOT
     Route: 042
     Dates: start: 20180322
  2. PLETAAL [Suspect]
     Active Substance: CILOSTAZOL
     Indication: CEREBRAL ARTERY OCCLUSION
     Dosage: UNK
     Route: 048
     Dates: end: 20180322
  3. BAYASPIRIN [Suspect]
     Active Substance: ASPIRIN
     Indication: CEREBRAL ARTERY OCCLUSION
     Dosage: UNK
     Route: 048
     Dates: end: 20180322
  4. WARFARIN [Concomitant]
     Active Substance: WARFARIN
     Indication: ARRHYTHMIA PROPHYLAXIS
     Dosage: 4.5 MG, QD
     Route: 048
     Dates: start: 20100909, end: 20180322
  5. LASIX [Concomitant]
     Active Substance: FUROSEMIDE
     Indication: CARDIAC FAILURE CONGESTIVE
     Route: 048
  6. DIGOXIN. [Concomitant]
     Active Substance: DIGOXIN
     Indication: ATRIAL FIBRILLATION
     Dosage: UNK
     Route: 048
     Dates: end: 20180322
  7. SPIRONOLACTONE. [Concomitant]
     Active Substance: SPIRONOLACTONE
     Indication: CARDIAC FAILURE CONGESTIVE
     Route: 048
  8. KAYTWO [Concomitant]
     Active Substance: MENATETRENONE
     Indication: PROCOAGULANT THERAPY
     Dosage: 10 MG, QD
     Route: 065
     Dates: start: 20180322, end: 20180322

REACTIONS (1)
  - Cerebral haemorrhage [Recovered/Resolved with Sequelae]

NARRATIVE: CASE EVENT DATE: 20180323
